FAERS Safety Report 9163938 (Version 1)
Quarter: 2013Q1

REPORT INFORMATION
  Report Type: Spontaneous
  Country: BR (occurrence: BR)
  Receive Date: 20130314
  Receipt Date: 20130314
  Transmission Date: 20140127
  Serious: Yes (Death)
  Sender: FDA-Public Use
  Company Number: BR-ASTRAZENECA-2013SE16272

PATIENT
  Age: 67 Year
  Sex: Male

DRUGS (3)
  1. DIPRIVAN [Suspect]
     Route: 042
     Dates: start: 20130129, end: 20130129
  2. FENTANYL [Suspect]
     Route: 042
     Dates: start: 20130129, end: 20130129
  3. PAVULON [Suspect]
     Route: 042
     Dates: start: 20130129, end: 20130129

REACTIONS (1)
  - Euthanasia [Fatal]
